FAERS Safety Report 5117816-9 (Version None)
Quarter: 2006Q3

REPORT INFORMATION
  Report Type: 
  Country: None (occurrence: None)
  Receive Date: 20060929
  Receipt Date: 20060914
  Transmission Date: 20061208
  Serious: Yes (Disabling)
  Sender: FDA-Public Use
  Company Number: AUWYE994222SEP06

PATIENT
  Sex: Female
  Weight: 73 kg

DRUGS (21)
  1. ENBREL [Suspect]
     Indication: RHEUMATOID ARTHRITIS
     Route: 058
     Dates: start: 20050101
  2. ENBREL [Suspect]
     Route: 058
  3. LPV [Concomitant]
     Indication: INFECTION PROPHYLAXIS
     Route: 048
  4. ACETAMINOPHEN W/ CODEINE [Concomitant]
     Indication: HEADACHE
     Dosage: 1/2 TO 1 TABLET WHEN NEEDED
     Route: 048
  5. ZYDOL - SLOW RELEASE [Concomitant]
     Indication: PAIN
     Route: 048
  6. SLOW-K [Concomitant]
     Route: 048
  7. ROCALTROL [Concomitant]
     Indication: OSTEOPOROSIS
     Route: 048
  8. DOTHIEPIN HYDROCHLORIDE [Concomitant]
     Indication: NECK PAIN
     Route: 048
  9. PANAFCORTELONE [Concomitant]
     Indication: RHEUMATOID ARTHRITIS
     Route: 048
  10. NORVASC [Concomitant]
     Indication: BLOOD PRESSURE
     Route: 048
  11. NEXIUM [Concomitant]
     Indication: VARICES OESOPHAGEAL
     Route: 048
  12. MONOPRIL [Concomitant]
     Indication: BLOOD PRESSURE
     Dosage: 10 MG AT NIGHT
     Route: 048
  13. MONOPRIL [Concomitant]
     Dosage: 20 MG IN THE MORNING
     Route: 048
  14. PROPRANOLOL HYDROCHLORIDE [Concomitant]
     Indication: BLOOD PRESSURE
     Route: 048
  15. IMURAN [Concomitant]
     Indication: RHEUMATOID ARTHRITIS
     Route: 065
  16. FUNGILIN [Concomitant]
     Indication: MOUTH ULCERATION
     Dosage: 50 MG X 1 WHEN NEEDED
     Route: 048
  17. FML [Concomitant]
     Indication: DRY EYE
     Dosage: ONE DROP WHEN NEEDED
     Route: 047
  18. ENDEP [Concomitant]
     Indication: MUSCLE RELAXANT THERAPY
     Route: 048
  19. ELOCON [Concomitant]
     Indication: DERMATITIS
     Dosage: APPLY TWICE DAILY FOR LESS THAN 1 WEEK
     Route: 061
  20. ELOCON [Concomitant]
     Indication: ECZEMA
  21. ELOCON [Concomitant]
     Indication: VASCULITIS

REACTIONS (6)
  - CONDITION AGGRAVATED [None]
  - DERMATITIS [None]
  - ECZEMA [None]
  - IRON DEFICIENCY [None]
  - NAUSEA [None]
  - VASCULITIS [None]
